FAERS Safety Report 7408714-6 (Version None)
Quarter: 2011Q2

REPORT INFORMATION
  Report Type: 
  Country: None (occurrence: None)
  Receive Date: 20110412
  Receipt Date: 20110404
  Transmission Date: 20111010
  Serious: Yes (Death, Life-Threatening)
  Sender: FDA-Public Use
  Company Number: FR-BRISTOL-MYERS SQUIBB COMPANY-15654023

PATIENT
  Age: 87 Year
  Sex: Female

DRUGS (9)
  1. KARDEGIC [Concomitant]
  2. CACIT D3 [Concomitant]
  3. STABLON [Concomitant]
  4. ATENOLOL [Concomitant]
     Dosage: 1 DF: ATENOLOL 50 MG,0.5/D,
  5. AMLODIPINE BESYLATE [Concomitant]
  6. ACETAMINOPHEN [Concomitant]
  7. NORSET [Concomitant]
  8. KAYEXALATE [Concomitant]
  9. COUMADIN [Suspect]
     Indication: PULMONARY EMBOLISM
     Dates: start: 20101206, end: 20101217

REACTIONS (2)
  - METRORRHAGIA [None]
  - DEATH [None]
